FAERS Safety Report 23677253 (Version 1)
Quarter: 2024Q1

REPORT INFORMATION
  Report Type: Spontaneous
  Country: CN (occurrence: CN)
  Receive Date: 20240327
  Receipt Date: 20240327
  Transmission Date: 20240409
  Serious: Yes (Other)
  Sender: FDA-Public Use
  Company Number: None

PATIENT
  Age: 58 Year
  Sex: Male
  Weight: 70 kg

DRUGS (2)
  1. MANNITOL [Suspect]
     Active Substance: MANNITOL
     Indication: Arthritis
     Dosage: 250 ML ONCE A DAY (DOSAGE FORM: INJECTION)
     Route: 041
     Dates: start: 20240120, end: 20240120
  2. DEXAMETHASONE SODIUM PHOSPHATE [Suspect]
     Active Substance: DEXAMETHASONE PHOSPHATE\DEXAMETHASONE SODIUM PHOSPHATE
     Indication: Arthritis
     Dosage: 5 MG ONCE A DAY
     Route: 042
     Dates: start: 20240120, end: 20240120

REACTIONS (4)
  - Cold sweat [Recovered/Resolved]
  - Dizziness [Recovered/Resolved]
  - Blood pressure systolic decreased [Recovering/Resolving]
  - Blood pressure diastolic decreased [Recovering/Resolving]

NARRATIVE: CASE EVENT DATE: 20240120
